FAERS Safety Report 21139197 (Version 1)
Quarter: 2022Q3

REPORT INFORMATION
  Report Type: Spontaneous
  Country: US (occurrence: US)
  Receive Date: 20220727
  Receipt Date: 20220727
  Transmission Date: 20221026
  Serious: Yes (Other)
  Sender: FDA-Public Use
  Company Number: US-OTSUKA-2022_037697

PATIENT
  Sex: Male
  Weight: 81.65 kg

DRUGS (4)
  1. ABILIFY [Suspect]
     Active Substance: ARIPIPRAZOLE
     Indication: Psychotic disorder
     Dosage: 30 MG, QD
     Route: 048
     Dates: start: 2022
  2. ABILIFY [Suspect]
     Active Substance: ARIPIPRAZOLE
     Indication: Paranoia
  3. ABILIFY [Suspect]
     Active Substance: ARIPIPRAZOLE
     Indication: Suicidal ideation
  4. TRAZODONE [Concomitant]
     Active Substance: TRAZODONE HYDROCHLORIDE
     Indication: Product used for unknown indication
     Dosage: 500 MG, QD (AT NIGHT)
     Route: 065

REACTIONS (3)
  - Brain injury [Unknown]
  - Product dose omission in error [Unknown]
  - Product use in unapproved indication [Unknown]
